FAERS Safety Report 25173386 (Version 1)
Quarter: 2025Q2

REPORT INFORMATION
  Report Type: Spontaneous
  Country: US (occurrence: US)
  Receive Date: 20250408
  Receipt Date: 20250408
  Transmission Date: 20250717
  Serious: No
  Sender: TAKEDA
  Company Number: US-TAKEDA-2025TUS035028

PATIENT

DRUGS (1)
  1. DEXTROAMPHETAMINE SACCHARATE, AMPHETAMINE ASPARTATE, DEXTROAMPHETAMINE [Suspect]
     Active Substance: AMPHETAMINE ASPARTATE\AMPHETAMINE SULFATE\DEXTROAMPHETAMINE SACCHARATE\DEXTROAMPHETAMINE SULFATE
     Indication: Product used for unknown indication

REACTIONS (10)
  - Product quality issue [Unknown]
  - Ocular discomfort [Unknown]
  - Skin discolouration [Unknown]
  - Vertigo [Unknown]
  - Abdominal pain upper [Unknown]
  - Micturition urgency [Unknown]
  - Dysuria [Unknown]
  - Dry mouth [Unknown]
  - Nausea [Unknown]
  - Headache [Unknown]
